FAERS Safety Report 5073587-6 (Version None)
Quarter: 2006Q3

REPORT INFORMATION
  Report Type: 
  Country: None (occurrence: None)
  Receive Date: 20060808
  Receipt Date: 20060728
  Transmission Date: 20061208
  Serious: Yes (Other)
  Sender: FDA-Public Use
  Company Number: US-GLAXOSMITHKLINE-A0614453A

PATIENT
  Age: 45 Year
  Sex: Male

DRUGS (3)
  1. EPZICOM [Suspect]
     Indication: HIV INFECTION
     Dosage: 1TAB PER DAY
     Route: 048
     Dates: start: 20050713
  2. LEXIVA [Suspect]
     Indication: HIV INFECTION
     Dosage: 1400MG PER DAY
     Route: 048
     Dates: start: 20050713
  3. RITONAVIR [Suspect]
     Indication: HIV INFECTION
     Dosage: 100MG PER DAY
     Route: 048
     Dates: start: 20050713

REACTIONS (1)
  - NO ADVERSE DRUG EFFECT [None]
